FAERS Safety Report 15177804 (Version 2)
Quarter: 2018Q4

REPORT INFORMATION
  Report Type: Report from Study
  Country: US (occurrence: US)
  Receive Date: 20180720
  Receipt Date: 20181017
  Transmission Date: 20190204
  Serious: No
  Sender: FDA-Public Use
  Company Number: US-AMGEN-USASL2018082260

PATIENT
  Age: 50 Year
  Sex: Female

DRUGS (2)
  1. REPATHA [Suspect]
     Active Substance: EVOLOCUMAB
     Indication: TYPE IIA HYPERLIPIDAEMIA
     Dosage: UNK
     Route: 065
     Dates: start: 20180615
  2. REPATHA [Suspect]
     Active Substance: EVOLOCUMAB
     Indication: BLOOD CHOLESTEROL INCREASED

REACTIONS (6)
  - Product dose omission [Unknown]
  - Cough [Unknown]
  - Vision blurred [Not Recovered/Not Resolved]
  - Incorrect dose administered by device [Unknown]
  - Accidental exposure to product [Unknown]
  - Injection site swelling [Unknown]

NARRATIVE: CASE EVENT DATE: 20180615
